FAERS Safety Report 21865583 (Version 2)
Quarter: 2023Q1

REPORT INFORMATION
  Report Type: Spontaneous
  Country: IT (occurrence: IT)
  Receive Date: 20230116
  Receipt Date: 20230220
  Transmission Date: 20230418
  Serious: Yes (Hospitalization)
  Sender: FDA-Public Use
  Company Number: IT-MYLANLABS-15X-083-1219884-00

PATIENT
  Age: 55 Year
  Sex: Female

DRUGS (6)
  1. ALPRAZOLAM [Suspect]
     Active Substance: ALPRAZOLAM
     Indication: Tension
     Dosage: 1 DF TOTAL
     Route: 048
     Dates: start: 20150401, end: 20150401
  2. ANTABUSE [Suspect]
     Active Substance: DISULFIRAM
     Indication: Alcohol detoxification
     Dosage: 1 DF, TOTAL
     Route: 048
     Dates: start: 20150401, end: 20150401
  3. ZANTAC [Concomitant]
     Active Substance: RANITIDINE HYDROCHLORIDE
     Indication: Aggression
     Dosage: 2 VIAL
     Route: 065
  4. ZANTAC [Concomitant]
     Active Substance: RANITIDINE HYDROCHLORIDE
     Indication: Psychomotor hyperactivity
  5. EN [Concomitant]
     Active Substance: DELORAZEPAM
     Indication: Aggression
     Dosage: 5 MG, UNK, VIAL
     Route: 042
  6. EN [Concomitant]
     Active Substance: DELORAZEPAM
     Indication: Psychomotor hyperactivity

REACTIONS (7)
  - Psychomotor hyperactivity [Recovering/Resolving]
  - Aggression [Recovering/Resolving]
  - Restlessness [Recovering/Resolving]
  - Language disorder [Recovering/Resolving]
  - Alcohol poisoning [Recovering/Resolving]
  - Drug abuse [Recovering/Resolving]
  - Toxicity to various agents [Recovering/Resolving]

NARRATIVE: CASE EVENT DATE: 20150401
